FAERS Safety Report 18700515 (Version 2)
Quarter: 2021Q1

REPORT INFORMATION
  Report Type: Spontaneous
  Country: CA (occurrence: CA)
  Receive Date: 20210105
  Receipt Date: 20210106
  Transmission Date: 20210419
  Serious: Yes (Hospitalization)
  Sender: FDA-Public Use
  Company Number: CA-ROCHE-2741919

PATIENT
  Age: 67 Year
  Sex: Female
  Weight: 63 kg

DRUGS (20)
  1. RITUXIMAB. [Suspect]
     Active Substance: RITUXIMAB
     Indication: RHEUMATOID ARTHRITIS
     Dosage: CYCLICAL
     Route: 042
  2. SULFASALAZINE. [Suspect]
     Active Substance: SULFASALAZINE
     Indication: PRODUCT USED FOR UNKNOWN INDICATION
     Dosage: 730.0 DAYS
     Route: 048
  3. TOFACITINIB CITRATE [Suspect]
     Active Substance: TOFACITINIB CITRATE
     Indication: PRODUCT USED FOR UNKNOWN INDICATION
     Dosage: 214.0 DAYS
     Route: 065
  4. KRILL OIL [Concomitant]
     Active Substance: DIETARY SUPPLEMENT\KRILL OIL
  5. LEFLUNOMIDE. [Concomitant]
     Active Substance: LEFLUNOMIDE
  6. METHOTREXATE. [Suspect]
     Active Substance: METHOTREXATE
     Indication: PRODUCT USED FOR UNKNOWN INDICATION
     Dosage: 1825.0 DAYS
     Route: 058
  7. IMOVANE [Concomitant]
     Active Substance: ZOPICLONE
  8. ACETAMINOPHEN. [Concomitant]
     Active Substance: ACETAMINOPHEN
     Indication: PREMEDICATION
     Route: 048
  9. ARAVA [Concomitant]
     Active Substance: LEFLUNOMIDE
  10. HYDROMORPHONE [Concomitant]
     Active Substance: HYDROMORPHONE
  11. MAGNESIUM GLYCINATE [Concomitant]
     Active Substance: MAGNESIUM GLYCINATE
  12. RISEDRONATE SODIUM. [Concomitant]
     Active Substance: RISEDRONATE SODIUM
  13. CYMBALTA [Concomitant]
     Active Substance: DULOXETINE HYDROCHLORIDE
  14. HYDROXYCHLOROQUINE SULPHATE [Concomitant]
     Active Substance: HYDROXYCHLOROQUINE
  15. DIPHENHYDRAMINE. [Concomitant]
     Active Substance: DIPHENHYDRAMINE
     Indication: PREMEDICATION
     Route: 048
  16. LEVOTHYROXINE SODIUM. [Concomitant]
     Active Substance: LEVOTHYROXINE SODIUM
  17. METHYLPREDNISOLONE. [Concomitant]
     Active Substance: METHYLPREDNISOLONE
     Indication: PREMEDICATION
     Route: 042
  18. DICLOFENAC [Concomitant]
     Active Substance: DICLOFENAC
  19. PREDNISONE. [Concomitant]
     Active Substance: PREDNISONE
  20. PREMARIN [Concomitant]
     Active Substance: ESTROGENS, CONJUGATED

REACTIONS (28)
  - Blood count abnormal [Not Recovered/Not Resolved]
  - Off label use [Unknown]
  - Thrombocytopenia [Not Recovered/Not Resolved]
  - Bone fragmentation [Not Recovered/Not Resolved]
  - Effusion [Not Recovered/Not Resolved]
  - Pain in extremity [Not Recovered/Not Resolved]
  - Spinal disorder [Not Recovered/Not Resolved]
  - Rheumatoid arthritis [Not Recovered/Not Resolved]
  - Conjunctivitis [Not Recovered/Not Resolved]
  - Device breakage [Not Recovered/Not Resolved]
  - Fall [Not Recovered/Not Resolved]
  - Oral herpes [Not Recovered/Not Resolved]
  - Pelvic fracture [Not Recovered/Not Resolved]
  - Arthritis [Not Recovered/Not Resolved]
  - Body temperature decreased [Not Recovered/Not Resolved]
  - Impaired healing [Not Recovered/Not Resolved]
  - Infusion related reaction [Not Recovered/Not Resolved]
  - Pain [Not Recovered/Not Resolved]
  - Dry mouth [Not Recovered/Not Resolved]
  - Dental caries [Not Recovered/Not Resolved]
  - Drug ineffective [Unknown]
  - Hypertonic bladder [Not Recovered/Not Resolved]
  - Ill-defined disorder [Not Recovered/Not Resolved]
  - Rib fracture [Not Recovered/Not Resolved]
  - Gastric disorder [Not Recovered/Not Resolved]
  - Intentional product use issue [Unknown]
  - Osteoarthritis [Not Recovered/Not Resolved]
  - Transaminases increased [Not Recovered/Not Resolved]
